FAERS Safety Report 10380624 (Version 1)
Quarter: 2014Q3

REPORT INFORMATION
  Report Type: Spontaneous
  Country: US (occurrence: None)
  Receive Date: 20140812
  Receipt Date: 20140812
  Transmission Date: 20150326
  Serious: Yes (Disabling)
  Sender: FDA-Public Use
  Company Number: None

PATIENT
  Age: 49 Year
  Sex: Female
  Weight: 56.7 kg

DRUGS (2)
  1. CIPRO [Suspect]
     Active Substance: CIPROFLOXACIN HYDROCHLORIDE
     Indication: ABDOMINAL ABSCESS
     Dosage: INTO THE VEIN
     Dates: start: 20120619, end: 20120624
  2. CIPRO [Suspect]
     Active Substance: CIPROFLOXACIN HYDROCHLORIDE
     Indication: APPENDICITIS
     Dosage: INTO THE VEIN
     Dates: start: 20120619, end: 20120624

REACTIONS (13)
  - Pain in extremity [None]
  - Tendon rupture [None]
  - Renal pain [None]
  - Rotator cuff syndrome [None]
  - Loss of libido [None]
  - Menstruation irregular [None]
  - Arthralgia [None]
  - Suicidal ideation [None]
  - Alopecia [None]
  - Skin atrophy [None]
  - Irritability [None]
  - Psychotic disorder [None]
  - Cognitive disorder [None]

NARRATIVE: CASE EVENT DATE: 20120619
